FAERS Safety Report 6441779-7 (Version None)
Quarter: 2009Q4

REPORT INFORMATION
  Report Type: 
  Country: None (occurrence: None)
  Receive Date: 20091116
  Receipt Date: 20091104
  Transmission Date: 20100525
  Serious: Yes (Hospitalization, Other)
  Sender: FDA-Public Use
  Company Number: JP-PFIZER INC-2009266527

PATIENT
  Age: 61 Year
  Sex: Female
  Weight: 56 kg

DRUGS (8)
  1. SUNITINIB MALATE [Suspect]
     Indication: RENAL CELL CARCINOMA
     Dosage: 37.5 MG, 1X/DAY
     Route: 048
     Dates: start: 20090806, end: 20090820
  2. CALONAL [Concomitant]
     Dosage: UNK
     Route: 048
     Dates: start: 20090126
  3. AMLODIPINE [Concomitant]
     Dosage: UNK
     Route: 048
     Dates: start: 20080101
  4. MOBIC [Concomitant]
     Dosage: UNK
     Route: 048
     Dates: start: 20080101
  5. GASLON [Concomitant]
     Dosage: UNK
     Route: 048
     Dates: start: 20080101
  6. PURSENNID [Concomitant]
     Dosage: UNK
     Route: 048
     Dates: start: 20080101
  7. TOFRANIL [Concomitant]
     Dosage: UNK
     Route: 048
     Dates: start: 20080101
  8. MICARDIS [Concomitant]
     Dosage: UNK
     Route: 048
     Dates: start: 20080101

REACTIONS (2)
  - CHOLECYSTITIS ACUTE [None]
  - PLATELET COUNT DECREASED [None]
